FAERS Safety Report 4350846-3 (Version None)
Quarter: 2004Q2

REPORT INFORMATION
  Report Type: 
  Country: None (occurrence: None)
  Receive Date: 20040428
  Receipt Date: 20040415
  Transmission Date: 20050107
  Serious: No
  Sender: FDA-Public Use
  Company Number: 04H-163-0258071-00

PATIENT

DRUGS (1)
  1. LACTATED RINGER'S IN PLASTIC CONTAINER [Suspect]
     Dates: start: 20040101, end: 20040101

REACTIONS (1)
  - CONVULSION [None]
